FAERS Safety Report 5201401-4 (Version None)
Quarter: 2007Q1

REPORT INFORMATION
  Report Type: 
  Country: None (occurrence: None)
  Receive Date: 20070104
  Receipt Date: 20061226
  Transmission Date: 20070707
  Serious: Yes (Hospitalization)
  Sender: FDA-Public Use
  Company Number: B0452096A

PATIENT
  Age: 37 Year
  Sex: Female

DRUGS (2)
  1. EPIVIR [Suspect]
     Indication: HIV INFECTION
     Dosage: 150 MG / TWICE PER DAY /
     Dates: start: 20040401
  2. FLUCONAZOLE [Concomitant]

REACTIONS (4)
  - IMMUNE RECONSTITUTION SYNDROME [None]
  - INTRACRANIAL PRESSURE INCREASED [None]
  - MENINGITIS ASEPTIC [None]
  - VASCULITIS CEREBRAL [None]
